FAERS Safety Report 5060133-6 (Version None)
Quarter: 2006Q3

REPORT INFORMATION
  Report Type: 
  Country: None (occurrence: None)
  Receive Date: 20060718
  Receipt Date: 20060705
  Transmission Date: 20061208
  Serious: Yes (Hospitalization)
  Sender: FDA-Public Use
  Company Number: B0430892A

PATIENT

DRUGS (1)
  1. LITHIUM SALT (FORMULATION UNKNOWN) (LITHIUM SALT) [Suspect]
     Indication: DRUG USE FOR UNKNOWN INDICATION

REACTIONS (3)
  - EXTRAPYRAMIDAL DISORDER [None]
  - GASTROINTESTINAL DISORDER [None]
  - THERAPEUTIC AGENT TOXICITY [None]
